FAERS Safety Report 7821263-6 (Version None)
Quarter: 2011Q4

REPORT INFORMATION
  Report Type: 
  Country: None (occurrence: None)
  Receive Date: 20111018
  Receipt Date: 20110414
  Transmission Date: 20120403
  Serious: No
  Sender: FDA-Public Use
  Company Number: US-ASTRAZENECA-2011SE21735

PATIENT
  Age: 67 Year
  Sex: Female

DRUGS (2)
  1. SYMBICORT [Suspect]
     Dosage: 160/4.5 MCG 2 PUFFS BID
     Route: 055
     Dates: start: 20100101
  2. SYMBICORT [Suspect]
     Dosage: 80/4.5 MCG UNKNOWN FREQUENCY
     Route: 055
     Dates: start: 20110101

REACTIONS (2)
  - DRUG DOSE OMISSION [None]
  - DYSPNOEA [None]
